FAERS Safety Report 6115197-5 (Version None)
Quarter: 2009Q1

REPORT INFORMATION
  Report Type: 
  Country: None (occurrence: None)
  Receive Date: 20090313
  Receipt Date: 20090304
  Transmission Date: 20090719
  Serious: Yes (Other)
  Sender: FDA-Public Use
  Company Number: JP-JNJFOC-20090101824

PATIENT
  Sex: Female
  Weight: 49 kg

DRUGS (12)
  1. REMICADE [Suspect]
     Route: 042
  2. REMICADE [Suspect]
     Dosage: 5 INFUSIONS ON UNSPECIFIED DATES
     Route: 042
  3. REMICADE [Suspect]
     Indication: CROHN'S DISEASE
     Dosage: 7 INFUSIONS ON UNKNOWN DATES
     Route: 042
  4. IMURAN [Concomitant]
     Indication: CROHN'S DISEASE
     Route: 048
  5. ENSURE LIQUID [Concomitant]
     Indication: CROHN'S DISEASE
     Route: 048
  6. SODIUM ALGINATE [Concomitant]
     Indication: FEMALE GENITAL TRACT FISTULA
     Route: 054
  7. THEO-DUR [Concomitant]
     Indication: ASTHMA
     Route: 048
  8. DAI-KENCHU-TO [Concomitant]
     Indication: CROHN'S DISEASE
     Route: 048
  9. LOXONIN [Concomitant]
     Indication: PAIN
     Route: 048
  10. MUCOSTA [Concomitant]
     Indication: PAIN
     Route: 048
  11. AMOBAN [Concomitant]
     Indication: INSOMNIA
     Route: 048
  12. EBASTINE [Concomitant]
     Indication: ASTHMA

REACTIONS (1)
  - ANAL CANCER [None]
